FAERS Safety Report 19886878 (Version 1)
Quarter: 2021Q3

REPORT INFORMATION
  Report Type: Other
  Country: US (occurrence: US)
  Receive Date: 20210928
  Receipt Date: 20210928
  Transmission Date: 20211014
  Serious: Yes (Other)
  Sender: FDA-Public Use
  Company Number: US-INTERCEPT-PM2021002671

PATIENT
  Sex: Female

DRUGS (10)
  1. OCALIVA [Suspect]
     Active Substance: OBETICHOLIC ACID
     Indication: PRIMARY BILIARY CHOLANGITIS
     Dosage: 5 MILLIGRAM, QD
     Route: 048
     Dates: start: 20170503
  2. PRILOSEC [Concomitant]
     Active Substance: OMEPRAZOLE MAGNESIUM
     Dosage: 20 MILLIGRAM, QD
     Route: 048
  3. OCALIVA [Suspect]
     Active Substance: OBETICHOLIC ACID
     Dosage: 10 MILLIGRAM, QD
     Route: 048
     Dates: end: 202106
  4. OCALIVA [Suspect]
     Active Substance: OBETICHOLIC ACID
     Dosage: UNK
  5. ACTIGALL [Concomitant]
     Active Substance: URSODIOL
     Indication: PRIMARY BILIARY CHOLANGITIS
     Dosage: 600 MILLIGRAM, BID
     Route: 048
  6. RETIN?A [Concomitant]
     Active Substance: TRETINOIN
     Dosage: UNK, QHS
  7. MAGNESIUM GLYCINATE [Concomitant]
     Active Substance: MAGNESIUM GLYCINATE
     Dosage: 400 MILLIGRAM, QD
     Route: 048
  8. CALCIUM CARBONATE AND VITAMIN D3 [Concomitant]
     Active Substance: CALCIUM CARBONATE\CHOLECALCIFEROL
     Dosage: 1200 MILLIGRAM, QD
     Route: 048
  9. HEXAVITAMIN [VITAMINS NOS] [Concomitant]
     Dosage: UNK, QD
     Route: 048
  10. SYNTHROID [Concomitant]
     Active Substance: LEVOTHYROXINE SODIUM
     Dosage: 75 MICROGRAM, QD
     Route: 048

REACTIONS (9)
  - Oesophagitis [Unknown]
  - Dry mouth [Unknown]
  - Pruritus [Recovering/Resolving]
  - Hepatic fibrosis [Unknown]
  - Hepatic cirrhosis [Unknown]
  - Fatigue [Unknown]
  - Blood alkaline phosphatase abnormal [Unknown]
  - Dry eye [Unknown]
  - Nausea [Unknown]

NARRATIVE: CASE EVENT DATE: 2020
